FAERS Safety Report 4691134-5 (Version None)
Quarter: 2005Q2

REPORT INFORMATION
  Report Type: 
  Country: None (occurrence: None)
  Receive Date: 20050610
  Receipt Date: 20050602
  Transmission Date: 20051028
  Serious: Yes (Disabling)
  Sender: FDA-Public Use
  Company Number: SU-2005-003397

PATIENT
  Age: 37 Year
  Sex: Male
  Weight: 65 kg

DRUGS (5)
  1. OLMESARTAN [Suspect]
     Indication: HYPERTENSION
     Dosage: 80 MG QD PO
     Route: 048
     Dates: start: 20050302, end: 20050327
  2. DOXAZOSIN [Concomitant]
  3. BETA BLOCKERS NOS [Concomitant]
  4. ANTIDIABETICS [Concomitant]
  5. ANTICALCIUM [Concomitant]

REACTIONS (1)
  - EPISTAXIS [None]
